FAERS Safety Report 5835940-X (Version None)
Quarter: 2008Q3

REPORT INFORMATION
  Report Type: 
  Country: None (occurrence: None)
  Receive Date: 20080806
  Receipt Date: 20080727
  Transmission Date: 20090109
  Serious: Yes (Other)
  Sender: FDA-Public Use
  Company Number: US-PFIZER INC-2008064383

PATIENT

DRUGS (1)
  1. LYRICA [Suspect]

REACTIONS (3)
  - ANOREXIA [None]
  - HEPATITIS [None]
  - NAUSEA [None]
